FAERS Safety Report 7690565-9 (Version None)
Quarter: 2011Q3

REPORT INFORMATION
  Report Type: 
  Country: None (occurrence: None)
  Receive Date: 20110812
  Receipt Date: 20110728
  Transmission Date: 20111222
  Serious: No
  Sender: FDA-Public Use
  Company Number: LTI2011A00096

PATIENT
  Age: 69 Year
  Sex: Male

DRUGS (6)
  1. PIOGLITAZONE HYDROCHLORIDE/METFORMIN HYDROCHLORIDE [Suspect]
     Indication: TYPE 2 DIABETES MELLITUS
     Dosage: 3 TAB. (1 TAB.,3 IN 1 D) ORAL
     Route: 048
     Dates: start: 20101101, end: 20110411
  2. NOVONORM (REPAGLINIDE) [Concomitant]
  3. COZAAR [Concomitant]
  4. ZOCOR [Concomitant]
  5. NEBIVOLOL HCL [Concomitant]
  6. KARDEGIC (ACETYLALICYLATE LYSINE) [Concomitant]

REACTIONS (3)
  - HAEMATURIA [None]
  - BLADDER CANCER [None]
  - URINARY BLADDER POLYP [None]
